FAERS Safety Report 4639604-X (Version None)
Quarter: 2005Q2

REPORT INFORMATION
  Report Type: 
  Country: None (occurrence: None)
  Receive Date: 20050413
  Receipt Date: 20050407
  Transmission Date: 20051028
  Serious: Yes (Life-Threatening)
  Sender: FDA-Public Use
  Company Number: THYM-10448

PATIENT
  Age: 24 Year
  Sex: Female
  Weight: 79.379 kg

DRUGS (2)
  1. THYMOGLOBULIN [Suspect]
     Indication: RENAL TRANSPLANT
     Dosage: 100 MG QD IV
     Route: 042
     Dates: start: 20041130, end: 20041201
  2. THYMOGLOBULIN [Suspect]
     Indication: RENAL TRANSPLANT
     Dosage: 100 MG QD IV
     Route: 042
     Dates: start: 20041203, end: 20041204

REACTIONS (2)
  - ACUTE RESPIRATORY FAILURE [None]
  - PULMONARY OEDEMA [None]
